FAERS Safety Report 13073497 (Version 2)
Quarter: 2017Q1

REPORT INFORMATION
  Report Type: Report from Study
  Country: FI (occurrence: FI)
  Receive Date: 20161229
  Receipt Date: 20170113
  Transmission Date: 20170428
  Serious: Yes (Other)
  Sender: FDA-Public Use
  Company Number: FI-TEVA-723905ISR

PATIENT
  Age: 21 Year
  Sex: Female

DRUGS (2)
  1. BLEOMYCIN [Suspect]
     Active Substance: BLEOMYCIN SULFATE
     Indication: MALFORMATION VENOUS
     Dosage: 1 MG/ML
     Route: 065
  2. DOXYCYCLINE. [Suspect]
     Active Substance: DOXYCYCLINE
     Indication: MALFORMATION VENOUS
     Route: 065

REACTIONS (3)
  - Ophthalmoplegia [Recovered/Resolved]
  - Colour blindness [Recovered/Resolved]
  - Pain [Unknown]
